FAERS Safety Report 6339021-0 (Version None)
Quarter: 2009Q3

REPORT INFORMATION
  Report Type: 
  Country: None (occurrence: None)
  Receive Date: 20090903
  Receipt Date: 20090805
  Transmission Date: 20100115
  Serious: No
  Sender: FDA-Public Use
  Company Number: US-BAYER-200913149BCC

PATIENT
  Age: 22 Year
  Sex: Male
  Weight: 59 kg

DRUGS (3)
  1. ALEVE [Suspect]
     Indication: SLEEP DISORDER
     Dosage: TOTAL DAILY DOSE: 220 MG  UNIT DOSE: 220 MG
     Route: 048
     Dates: start: 20090804
  2. CARBAMAZEPINE [Concomitant]
     Route: 065
  3. LEXAPRO [Concomitant]
     Route: 065

REACTIONS (3)
  - ABDOMINAL PAIN UPPER [None]
  - PYREXIA [None]
  - VOMITING [None]
